FAERS Safety Report 14009225 (Version 1)
Quarter: 2017Q3

REPORT INFORMATION
  Report Type: Spontaneous
  Country: US (occurrence: US)
  Receive Date: 20170925
  Receipt Date: 20170925
  Transmission Date: 20171128
  Serious: Yes (Other)
  Sender: FDA-Public Use
  Company Number: US-BAYER-2017-181224

PATIENT
  Age: 27 Year
  Sex: Female

DRUGS (1)
  1. MIRENA [Suspect]
     Active Substance: LEVONORGESTREL
     Indication: CONTRACEPTION
     Dosage: 2020 MCG/24HR, CONT
     Route: 015
     Dates: start: 20170307, end: 20170819

REACTIONS (5)
  - Menstruation delayed [None]
  - Abdominal pain lower [None]
  - Device expulsion [None]
  - Amenorrhoea [Recovered/Resolved]
  - Genital haemorrhage [None]

NARRATIVE: CASE EVENT DATE: 2017
